FAERS Safety Report 4971208-1 (Version None)
Quarter: 2006Q1

REPORT INFORMATION
  Report Type: 
  Country: None (occurrence: None)
  Receive Date: 20060216
  Receipt Date: 20050309
  Transmission Date: 20060701
  Serious: Yes (Hospitalization)
  Sender: FDA-Public Use
  Company Number: 200503IM000065

PATIENT
  Age: 66 Year
  Sex: Female
  Weight: 110.2241 kg

DRUGS (6)
  1. BLINDED THERAPY (INTERFERON GAMMA-1B) [Suspect]
     Indication: IDIOPATHIC PULMONARY FIBROSIS
     Dosage: 200 UG, TIW, SUBCUTANEOUS
     Route: 058
     Dates: start: 20040727, end: 20050307
  2. BLINDED THERAPY (INTERFERON GAMMA-1B) [Suspect]
     Indication: IDIOPATHIC PULMONARY FIBROSIS
     Dosage: 200 UG, TIW, SUBCUTANEOUS
     Route: 058
     Dates: start: 20050314
  3. OXGEN [Concomitant]
  4. HYDROCHLOROTHIAZIDE [Concomitant]
  5. PRINIVIL [Concomitant]
  6. MOTRIN [Concomitant]

REACTIONS (1)
  - BRONCHITIS [None]
